FAERS Safety Report 14869816 (Version 1)
Quarter: 2018Q2

REPORT INFORMATION
  Report Type: Spontaneous
  Country: DE (occurrence: DE)
  Receive Date: 20180509
  Receipt Date: 20180509
  Transmission Date: 20180711
  Serious: Yes (Other)
  Sender: FDA-Public Use
  Company Number: DE-WEST-WARD PHARMACEUTICALS CORP.-DE-H14001-18-03675

PATIENT
  Sex: Female
  Weight: 95 kg

DRUGS (9)
  1. CARBOPLATIN. [Suspect]
     Active Substance: CARBOPLATIN
     Indication: OVARIAN CANCER
     Dosage: 6 CYCLES IN TOTAL ()
     Route: 065
  2. ALPHA LIPOIC ACID [Concomitant]
     Active Substance: .ALPHA.-LIPOIC ACID
     Indication: PRODUCT USED FOR UNKNOWN INDICATION
     Route: 065
  3. MISTLETOE EXTRACT [Concomitant]
     Active Substance: VISCUM ALBUM FRUITING TOP
     Indication: PRODUCT USED FOR UNKNOWN INDICATION
     Route: 058
  4. PROTHYRID [Concomitant]
     Active Substance: LEVOTHYROXINE SODIUM
     Indication: PRODUCT USED FOR UNKNOWN INDICATION
     Route: 065
  5. DEKRISTOL [Concomitant]
     Active Substance: CHOLECALCIFEROL
     Indication: PRODUCT USED FOR UNKNOWN INDICATION
     Route: 065
  6. PACLITAXEL. [Suspect]
     Active Substance: PACLITAXEL
     Indication: OVARIAN CANCER
     Dosage: 6 CYCLES IN TOTAL ()
     Route: 065
  7. BEVACIZUMAB. [Suspect]
     Active Substance: BEVACIZUMAB
     Indication: OVARIAN CANCER
     Route: 042
     Dates: start: 20140416, end: 20150716
  8. L-THYROXIN [Concomitant]
     Active Substance: LEVOTHYROXINE SODIUM
     Indication: PRODUCT USED FOR UNKNOWN INDICATION
     Route: 065
  9. AERIUS [Concomitant]
     Active Substance: DESLORATADINE
     Indication: PRODUCT USED FOR UNKNOWN INDICATION
     Route: 065

REACTIONS (16)
  - Renal cyst [Unknown]
  - Abdominal pain upper [Unknown]
  - Vomiting [Unknown]
  - Constipation [Unknown]
  - Nausea [Unknown]
  - Nail bed inflammation [Unknown]
  - Arthralgia [Recovering/Resolving]
  - Pain [Unknown]
  - Hypoaesthesia [Not Recovered/Not Resolved]
  - Hypertension [Recovered/Resolved]
  - Spinal osteoarthritis [Unknown]
  - Hot flush [Unknown]
  - Myalgia [Recovered/Resolved]
  - Pain in extremity [Recovered/Resolved]
  - Leukopenia [Unknown]
  - Abdominal discomfort [Unknown]
